FAERS Safety Report 25156910 (Version 1)
Quarter: 2025Q2

REPORT INFORMATION
  Report Type: Spontaneous
  Country: CN (occurrence: CN)
  Receive Date: 20250403
  Receipt Date: 20250403
  Transmission Date: 20250717
  Serious: Yes (Death, Life-Threatening, Hospitalization)
  Sender: ROCHE
  Company Number: CN-BoehringerIngelheim-2025-BI-018505

PATIENT
  Age: 74 Year
  Sex: Male
  Weight: 40.0 kg

DRUGS (2)
  1. ALTEPLASE [Suspect]
     Active Substance: ALTEPLASE
     Indication: Thrombolysis
     Route: 042
     Dates: start: 20250310, end: 20250310
  2. ALTEPLASE [Suspect]
     Active Substance: ALTEPLASE
     Route: 042
     Dates: start: 20250310, end: 20250310

REACTIONS (5)
  - Cerebral haemorrhage [Fatal]
  - Delirium [Not Recovered/Not Resolved]
  - Seizure [Not Recovered/Not Resolved]
  - Oxygen saturation decreased [Not Recovered/Not Resolved]
  - Lip haemorrhage [Unknown]

NARRATIVE: CASE EVENT DATE: 20250310
